FAERS Safety Report 8922874 (Version 1)
Quarter: 2012Q4

REPORT INFORMATION
  Report Type: 
  Country: JP (occurrence: JP)
  Receive Date: 20121123
  Receipt Date: 20121123
  Transmission Date: 20130627
  Serious: Yes (Hospitalization, Other)
  Sender: FDA-Public Use
  Company Number: JP-009507513-2012SP019209

PATIENT
  Age: 60 Year
  Sex: Female
  Weight: 60 kg

DRUGS (12)
  1. PEGINTRON [Suspect]
     Indication: CHRONIC HEPATITIS C
     Dosage: 1.0 microgram per kg per week
     Route: 058
     Dates: start: 20120201, end: 20120207
  2. PEGINTRON [Suspect]
     Dosage: 0.5 Microgram per kilogram, qw
     Route: 058
     Dates: start: 20120208, end: 20120221
  3. PEGINTRON [Suspect]
     Dosage: 1.0 microgram per kilogram, qw
     Route: 058
     Dates: start: 20120222, end: 20120313
  4. PEGINTRON [Suspect]
     Dosage: 0.83 Microgram per kilogram, qw
     Route: 058
     Dates: start: 20120314, end: 20120321
  5. REBETOL [Suspect]
     Indication: CHRONIC HEPATITIS C
     Dosage: 400 mg, qd, cumulative dose 800 mg
     Route: 048
     Dates: start: 20120201, end: 20120328
  6. TELAVIC [Suspect]
     Indication: CHRONIC HEPATITIS C
     Dosage: 1500 mg, qd, cumulative dose: 3000 mg
     Route: 048
     Dates: start: 20120201, end: 20120209
  7. TELAVIC [Suspect]
     Dosage: 1000 mg, qd, cumulative dose: 3000mg
     Dates: start: 20120210, end: 20120328
  8. ISOLEUCINE (+) LEUCINE (+) VALINE [Concomitant]
     Indication: CHRONIC HEPATITIS C
     Dosage: 12.45 g, qd, FORMULATION GRA
     Route: 048
  9. LASIX (FUROSEMIDE) [Concomitant]
     Indication: HYPERTENSION
     Dosage: 20 mg, qd,
     Route: 048
  10. ALDACTONE A [Concomitant]
     Indication: HYPERTENSION
     Dosage: 75 mg, qd
     Route: 048
  11. URSO [Concomitant]
     Indication: CHRONIC HEPATITIS C
     Dosage: 300 mg, qd
     Route: 048
     Dates: start: 20120411
  12. TAURINE [Concomitant]
     Indication: CHRONIC HEPATITIS C
     Dosage: 3.06 g, qd, Formulation: POR
     Route: 048

REACTIONS (2)
  - Rash [Recovering/Resolving]
  - Platelet count decreased [Recovering/Resolving]
